FAERS Safety Report 6604108-1 (Version None)
Quarter: 2010Q1

REPORT INFORMATION
  Report Type: 
  Country: None (occurrence: None)
  Receive Date: 20100226
  Receipt Date: 20090612
  Transmission Date: 20100710
  Serious: Yes (Other)
  Sender: FDA-Public Use
  Company Number: A0785950A

PATIENT
  Age: 37 Year
  Sex: Female
  Weight: 68.2 kg

DRUGS (8)
  1. LAMICTAL CD [Suspect]
     Indication: BIPOLAR DISORDER
     Dosage: 150MG TWICE PER DAY
     Route: 048
     Dates: start: 20070212, end: 20090515
  2. CLARITIN [Concomitant]
  3. ZANTAC [Concomitant]
  4. ATARAX [Concomitant]
  5. ATIVAN [Concomitant]
  6. TRAZODONE HCL [Concomitant]
  7. ABILIFY [Concomitant]
  8. EFFEXOR [Concomitant]

REACTIONS (3)
  - LOSS OF CONSCIOUSNESS [None]
  - RASH [None]
  - ROAD TRAFFIC ACCIDENT [None]
